FAERS Safety Report 14315039 (Version 2)
Quarter: 2018Q2

REPORT INFORMATION
  Report Type: Report from Study
  Country: US (occurrence: US)
  Receive Date: 20171221
  Receipt Date: 20180511
  Transmission Date: 20180711
  Serious: Yes (Other)
  Sender: FDA-Public Use
  Company Number: US-SA-2017SA107819

PATIENT
  Age: 50 Year
  Sex: Male

DRUGS (1)
  1. LEMTRADA [Suspect]
     Active Substance: ALEMTUZUMAB
     Indication: MULTIPLE SCLEROSIS
     Route: 041
     Dates: start: 20170605, end: 20170609

REACTIONS (7)
  - Headache [Unknown]
  - Asthenia [Unknown]
  - CD4 lymphocytes abnormal [Unknown]
  - Fall [Recovered/Resolved]
  - Pollakiuria [Recovered/Resolved]
  - Rash [Unknown]
  - Clostridium difficile infection [Recovered/Resolved]

NARRATIVE: CASE EVENT DATE: 20170611
